FAERS Safety Report 14126345 (Version 2)
Quarter: 2018Q2

REPORT INFORMATION
  Report Type: Not Available
  Country: US (occurrence: US)
  Receive Date: 20171025
  Receipt Date: 20180418
  Transmission Date: 20180711
  Serious: No
  Sender: FDA-Public Use
  Company Number: US-NEUROCRINE BIOSCIENCES INC.-2017NBI01101

PATIENT
  Sex: Female
  Weight: 44.49 kg

DRUGS (19)
  1. ALBUTEROL INHALER [Concomitant]
     Active Substance: ALBUTEROL
  2. METHADONE [Concomitant]
     Active Substance: METHADONE HYDROCHLORIDE
  3. LISINOPRIL. [Concomitant]
     Active Substance: LISINOPRIL
  4. TRAZODONE [Concomitant]
     Active Substance: TRAZODONE HYDROCHLORIDE
     Dosage: TAKE 1/3 TO 1 WHOLE TABLET NIGHTLY
  5. VITAMIN E [Concomitant]
     Active Substance: .ALPHA.-TOCOPHEROL
  6. BUSPIRONE [Concomitant]
     Active Substance: BUSPIRONE HYDROCHLORIDE
  7. LAMOTRIGINE. [Concomitant]
     Active Substance: LAMOTRIGINE
  8. INGREZZA [Suspect]
     Active Substance: VALBENAZINE
     Route: 048
     Dates: start: 201709, end: 2017
  9. CARVEDILOL. [Concomitant]
     Active Substance: CARVEDILOL
  10. PROLIA [Concomitant]
     Active Substance: DENOSUMAB
  11. INGREZZA [Suspect]
     Active Substance: VALBENAZINE
     Route: 048
     Dates: start: 201709, end: 201709
  12. CLONIDINE. [Concomitant]
     Active Substance: CLONIDINE
  13. INGREZZA [Suspect]
     Active Substance: VALBENAZINE
     Indication: TARDIVE DYSKINESIA
     Route: 048
     Dates: start: 2017, end: 2017
  14. AMLODIPINE [Concomitant]
     Active Substance: AMLODIPINE BESYLATE
  15. CALCIUM SUPPLEMENT [Concomitant]
     Active Substance: CALCIUM
  16. ASPIRIN. [Concomitant]
     Active Substance: ASPIRIN
  17. PRIMIDONE. [Concomitant]
     Active Substance: PRIMIDONE
  18. VITAMIN D [Concomitant]
     Active Substance: CHOLECALCIFEROL
  19. REMERON [Concomitant]
     Active Substance: MIRTAZAPINE

REACTIONS (4)
  - Depressed mood [Recovering/Resolving]
  - Fatigue [Recovered/Resolved]
  - Dizziness [Recovered/Resolved]
  - Somnolence [Recovered/Resolved]

NARRATIVE: CASE EVENT DATE: 2017
